FAERS Safety Report 19377500 (Version 2)
Quarter: 2021Q3

REPORT INFORMATION
  Report Type: Report from Study
  Country: CA (occurrence: CA)
  Receive Date: 20210605
  Receipt Date: 20210722
  Transmission Date: 20211014
  Serious: Yes (Hospitalization, Other)
  Sender: FDA-Public Use
  Company Number: CA-TAKEDA-CA201707108

PATIENT
  Age: 59 Year
  Sex: Male
  Weight: 71.7 kg

DRUGS (12)
  1. LOPERAMIDE [Concomitant]
     Active Substance: LOPERAMIDE
     Indication: PAIN
     Dosage: 4 MILLIGRAM, QID
     Route: 048
     Dates: start: 2017
  2. CODEINE [Concomitant]
     Active Substance: CODEINE
     Indication: GASTROINTESTINAL MOTILITY DISORDER
     Dosage: 15 MG, 1X/DAY:QD
     Route: 048
  3. VITAMIN B3 [Concomitant]
     Active Substance: NIACIN
     Indication: PRODUCT USED FOR UNKNOWN INDICATION
     Dosage: UNK, UNKNOWN
     Route: 048
  4. TEDUGLUTIDE [Suspect]
     Active Substance: TEDUGLUTIDE
     Indication: SHORT-BOWEL SYNDROME
     Dosage: 3.35 MG (0.05 MG/KG), 1X/DAY:QD
     Route: 058
     Dates: start: 20160502, end: 201704
  5. TEDUGLUTIDE [Suspect]
     Active Substance: TEDUGLUTIDE
     Indication: SHORT-BOWEL SYNDROME
     Dosage: 3.35 MG (0.05 MG/KG), 1X/DAY:QD
     Route: 058
     Dates: start: 20160502, end: 201704
  6. SODIUM BICARBONATE. [Concomitant]
     Active Substance: SODIUM BICARBONATE
     Indication: SUPPLEMENTATION THERAPY
     Dosage: 1 DOSAGE FORM, QD
     Route: 048
     Dates: start: 2017
  7. ZINC. [Concomitant]
     Active Substance: ZINC
     Indication: SUPPLEMENTATION THERAPY
     Dosage: 1 DOSAGE FORM, QD
     Route: 048
     Dates: start: 2017
  8. URSODIOL. [Concomitant]
     Active Substance: URSODIOL
     Indication: LIVER DISORDER
     Dosage: 250 MG, 2X/DAY:BID
     Route: 048
     Dates: start: 20160220
  9. ARIPRAZOLE [Concomitant]
     Active Substance: ARIPIPRAZOLE
     Indication: MENTAL DISORDER
     Dosage: 1 MILLIGRAM, QD
     Route: 048
     Dates: start: 2017
  10. TEDUGLUTIDE [Suspect]
     Active Substance: TEDUGLUTIDE
     Indication: SHORT-BOWEL SYNDROME
     Dosage: 3.35 MG (0.05 MG/KG), 1X/DAY:QD
     Route: 058
     Dates: start: 20160502, end: 201704
  11. MIRTAZAPINE. [Concomitant]
     Active Substance: MIRTAZAPINE
     Indication: DEPRESSION
     Dosage: 30 MG, 1X/DAY:QD
     Route: 048
  12. TEDUGLUTIDE [Suspect]
     Active Substance: TEDUGLUTIDE
     Indication: SHORT-BOWEL SYNDROME
     Dosage: 3.35 MG (0.05 MG/KG), 1X/DAY:QD
     Route: 058
     Dates: start: 20160502, end: 201704

REACTIONS (3)
  - Systemic candida [Recovered/Resolved]
  - Vascular device infection [Recovered/Resolved]
  - Confusional state [Recovered/Resolved]

NARRATIVE: CASE EVENT DATE: 20161007
